FAERS Safety Report 23924749 (Version 1)
Quarter: 2024Q2

REPORT INFORMATION
  Report Type: Spontaneous
  Country: US (occurrence: US)
  Receive Date: 20240531
  Receipt Date: 20240531
  Transmission Date: 20240716
  Serious: Yes (Other)
  Sender: FDA-Public Use
  Company Number: US-AMGEN-USASP2024102925

PATIENT

DRUGS (4)
  1. LUMAKRAS [Suspect]
     Active Substance: SOTORASIB
     Indication: Metastases to central nervous system
     Dosage: UNK
     Route: 065
  2. LUMAKRAS [Suspect]
     Active Substance: SOTORASIB
     Dosage: UNK, RE-CHALLENGED
     Route: 065
  3. PEMBROLIZUMAB [Suspect]
     Active Substance: PEMBROLIZUMAB
     Indication: Metastases to central nervous system
     Dosage: UNK
     Route: 065
  4. ADAGRASIB [Concomitant]
     Active Substance: ADAGRASIB
     Dosage: UNK

REACTIONS (3)
  - Hepatitis [Unknown]
  - Drug effective for unapproved indication [Unknown]
  - Off label use [Unknown]
